FAERS Safety Report 15053493 (Version 1)
Quarter: 2018Q2

REPORT INFORMATION
  Report Type: Report from Study
  Country: US (occurrence: US)
  Receive Date: 20180622
  Receipt Date: 20180622
  Transmission Date: 20180711
  Serious: No
  Sender: FDA-Public Use
  Company Number: US-AMGEN-USASP2015090119

PATIENT
  Age: 72 Year
  Sex: Female

DRUGS (1)
  1. NPLATE [Suspect]
     Active Substance: ROMIPLOSTIM
     Indication: IMMUNE THROMBOCYTOPENIC PURPURA
     Dosage: 200 MUG, Q2WK
     Route: 065

REACTIONS (11)
  - Cardiomyopathy [Unknown]
  - Eye pain [Unknown]
  - Scleral hyperaemia [Unknown]
  - Petechiae [Unknown]
  - Ocular hyperaemia [Recovered/Resolved]
  - Platelet count abnormal [Unknown]
  - Hyperaesthesia [Unknown]
  - Contusion [Unknown]
  - Hypertension [Unknown]
  - Vision blurred [Unknown]
  - Lacrimation increased [Unknown]

NARRATIVE: CASE EVENT DATE: 201508
